FAERS Safety Report 8592094-7 (Version None)
Quarter: 2012Q3

REPORT INFORMATION
  Report Type: 
  Country: None (occurrence: None)
  Receive Date: 20120814
  Receipt Date: 20120808
  Transmission Date: 20120928
  Serious: No
  Sender: FDA-Public Use
  Company Number: US-B.I. PHARMACEUTICALS,INC./RIDGEFIELD-2012-BP-17819BP

PATIENT
  Age: 60 Year
  Sex: Male
  Weight: 148.32 kg

DRUGS (8)
  1. TRAMADOL HCL [Concomitant]
     Dosage: 50 MG
  2. FLEXERIL [Concomitant]
     Dosage: 30 MG
     Route: 048
  3. VENTOLIN [Concomitant]
     Dosage: 10 MG
     Route: 055
  4. MEDROL [Concomitant]
  5. PRADAXA [Suspect]
     Dates: end: 20120427
  6. SINGULAIR [Concomitant]
     Dosage: 10 MG
  7. FLONASE [Concomitant]
     Dosage: 50 MCG
  8. ATENOLOL [Concomitant]
     Dosage: 100 MG

REACTIONS (1)
  - MALAISE [None]
